FAERS Safety Report 4429097-X (Version None)
Quarter: 2004Q3

REPORT INFORMATION
  Report Type: 
  Country: None (occurrence: None)
  Receive Date: 20040726
  Receipt Date: 20040205
  Transmission Date: 20050211
  Serious: No
  Sender: FDA-Public Use
  Company Number: USA040258617

PATIENT
  Age: 80 Year
  Sex: Female
  Weight: 57 kg

DRUGS (16)
  1. FORTEO [Suspect]
     Indication: OSTEOPOROSIS
     Dosage: 20 UG/DAY
     Dates: start: 20040203
  2. PROTAMINE SULFATE [Concomitant]
  3. IMDUR [Concomitant]
  4. PLAVIX [Concomitant]
  5. PLAQUENIL [Concomitant]
  6. ALTAC (RAMIPRIL) [Concomitant]
  7. COREG [Concomitant]
  8. POTASSIUM [Concomitant]
  9. PREVACID [Concomitant]
  10. TYLENOL [Concomitant]
  11. ZOCOR [Concomitant]
  12. SYNTHROID [Concomitant]
  13. CATAPRES [Concomitant]
  14. IRON [Concomitant]
  15. CALCIUM WITH VITAMIN D [Concomitant]
  16. ASPIRIN [Concomitant]

REACTIONS (5)
  - ABDOMINAL PAIN UPPER [None]
  - INJECTION SITE ERYTHEMA [None]
  - INJECTION SITE HAEMORRHAGE [None]
  - INJECTION SITE PAIN [None]
  - INJECTION SITE RASH [None]
